FAERS Safety Report 4291811-4 (Version None)
Quarter: 2004Q1

REPORT INFORMATION
  Report Type: 
  Country: None (occurrence: None)
  Receive Date: 20040210
  Receipt Date: 20040210
  Transmission Date: 20041129
  Serious: No
  Sender: FDA-Public Use
  Company Number: None

PATIENT
  Age: 20 Year
  Sex: Female
  Weight: 74.8435 kg

DRUGS (1)
  1. DEPO-PROVERA [Suspect]
     Indication: CONTRACEPTION
     Dosage: 1 DOSE 1 TIME UNKNOWN

REACTIONS (11)
  - ABDOMINAL PAIN [None]
  - DEPRESSION [None]
  - HEADACHE [None]
  - LOSS OF CONSCIOUSNESS [None]
  - MOOD SWINGS [None]
  - MUSCLE CRAMP [None]
  - RASH PRURITIC [None]
  - VAGINAL HAEMORRHAGE [None]
  - VISION BLURRED [None]
  - VOMITING [None]
  - WEIGHT INCREASED [None]
